FAERS Safety Report 11121811 (Version 3)
Quarter: 2015Q3

REPORT INFORMATION
  Report Type: Report from Study
  Country: US (occurrence: US)
  Receive Date: 20150519
  Receipt Date: 20150708
  Transmission Date: 20151125
  Serious: Yes (Other)
  Sender: FDA-Public Use
  Company Number: US-SA-2015SA066607

PATIENT
  Age: 32 Year
  Sex: Male

DRUGS (12)
  1. LANTUS SOLOSTAR [Concomitant]
     Active Substance: INSULIN GLARGINE
     Dosage: 100 UNIT/ML
     Route: 058
  2. SOLOSTAR [Concomitant]
     Active Substance: DEVICE
  3. LAMOTRIGINE. [Concomitant]
     Active Substance: LAMOTRIGINE
     Route: 048
  4. LANTUS [Suspect]
     Active Substance: INSULIN GLARGINE
     Indication: TYPE 1 DIABETES MELLITUS
     Route: 065
  5. KWIKPEN [Concomitant]
  6. GLUCAGON. [Concomitant]
     Active Substance: GLUCAGON
     Dosage: GIVE 1 MG SUBCUTANEOUSLY OR INTRAMUSCULARLY FOR HYPOGLYCEMIA, MAY REPEAT EVERY 20 MINUTES AS NEEDED
  7. LYRICA [Concomitant]
     Active Substance: PREGABALIN
     Dosage: 150 MG
     Route: 048
  8. AMLODIPINE BESILATE [Concomitant]
     Active Substance: AMLODIPINE BESYLATE
     Dosage: 2 PILLS IN THE MORNING, MAY TAKE AND ADDITONAL PILL AT NIGHT IF BP IS ELEAVED?STRENGTH: 5 MG
     Route: 048
  9. ATORVASTATIN CALCIUM. [Concomitant]
     Active Substance: ATORVASTATIN CALCIUM
     Dosage: STRENGTH: 80 MG
     Route: 048
  10. BISOPROLOL FUMARATE. [Concomitant]
     Active Substance: BISOPROLOL FUMARATE
     Dosage: 10 MG
     Route: 048
  11. HYDROCHLOROTHIAZIDE. [Concomitant]
     Active Substance: HYDROCHLOROTHIAZIDE
     Dosage: TAKE I TABLET DAILY PRN SWELLING
     Route: 048
  12. HUMALOG KWIKPEN [Concomitant]
     Active Substance: INSULIN LISPRO
     Dosage: SOLUTION PEN-INJECTOR?100 UNIT/ML
     Route: 058

REACTIONS (5)
  - Paralysis [Unknown]
  - Haemorrhage intracranial [Not Recovered/Not Resolved]
  - Cerebrovascular accident [Not Recovered/Not Resolved]
  - Cerebrovascular accident [Unknown]
  - Speech disorder [Unknown]

NARRATIVE: CASE EVENT DATE: 201404
